FAERS Safety Report 22925518 (Version 3)
Quarter: 2024Q1

REPORT INFORMATION
  Report Type: Spontaneous
  Country: US (occurrence: US)
  Receive Date: 20230908
  Receipt Date: 20240108
  Transmission Date: 20240410
  Serious: No
  Sender: FDA-Public Use
  Company Number: US-PFIZER INC-202300294215

PATIENT
  Age: 72 Year
  Sex: Male
  Weight: 81.65 kg

DRUGS (5)
  1. PAXLOVID [Suspect]
     Active Substance: NIRMATRELVIR\RITONAVIR
     Indication: COVID-19 treatment
     Dosage: UNK
     Dates: start: 20230821, end: 20230826
  2. FINASTERIDE [Concomitant]
     Active Substance: FINASTERIDE
     Dosage: ON A LOW DOSE, BEEN ON IT FOR A LONG TIME PROBABLY 20 YEARS
  3. CLARITIN [Concomitant]
     Active Substance: LORATADINE
     Dosage: BEEN ON IT FOR YEARS
  4. DOXYCYCLINE [Concomitant]
     Active Substance: DOXYCYCLINE
     Dosage: LOW DOSE EVERY OTHER DAY, BEEN ON IT FOR YEARS
  5. HYDROCORTISONE [Concomitant]
     Active Substance: HYDROCORTISONE
     Dosage: ON IT FOR YEARS FOR HIS FACE

REACTIONS (3)
  - COVID-19 [Unknown]
  - Disease recurrence [Unknown]
  - Seasonal allergy [Unknown]

NARRATIVE: CASE EVENT DATE: 20230101
